FAERS Safety Report 7866810-3 (Version None)
Quarter: 2011Q4

REPORT INFORMATION
  Report Type: 
  Country: None (occurrence: None)
  Receive Date: 20111028
  Receipt Date: 20110825
  Transmission Date: 20120403
  Serious: Yes (Hospitalization)
  Sender: FDA-Public Use
  Company Number: US-GLAXOSMITHKLINE-A0942309A

PATIENT
  Age: 75 Year
  Sex: Female

DRUGS (21)
  1. ESTRADIOL [Concomitant]
  2. ADVAIR DISKUS 100/50 [Suspect]
     Indication: CHRONIC OBSTRUCTIVE PULMONARY DISEASE
     Dosage: 1PUFF TWICE PER DAY
     Route: 055
     Dates: start: 20060801
  3. GABAPENTIN [Concomitant]
  4. NAPROXEN [Concomitant]
  5. VERAPAMIL EXTENDED-RELEASE [Concomitant]
  6. ALBUTEROL [Concomitant]
  7. UNKNOWN MEDICATION [Concomitant]
     Indication: RESTLESS LEGS SYNDROME
  8. VICODIN [Concomitant]
  9. VENTOLIN [Concomitant]
  10. STOOL SOFTENER [Concomitant]
  11. POTASSIUM [Concomitant]
  12. OMEPRAZOLE [Concomitant]
  13. LIQUEMINE [Concomitant]
  14. LASIX [Concomitant]
  15. MEDROXYPROGESTERONE [Concomitant]
  16. ROBAXIN [Concomitant]
  17. AMBIEN [Concomitant]
  18. SERTRALINE HYDROCHLORIDE [Concomitant]
  19. LACTULOSE [Concomitant]
  20. UNKNOWN MEDICATION [Concomitant]
  21. DUROLAX [Concomitant]

REACTIONS (6)
  - BACK PAIN [None]
  - MUSCLE STRAIN [None]
  - PRODUCT QUALITY ISSUE [None]
  - DYSPNOEA [None]
  - CONSTIPATION [None]
  - DRUG INEFFECTIVE [None]
